FAERS Safety Report 17470254 (Version 2)
Quarter: 2020Q2

REPORT INFORMATION
  Report Type: Spontaneous
  Country: JP (occurrence: JP)
  Receive Date: 20200227
  Receipt Date: 20200406
  Transmission Date: 20200713
  Serious: Yes (Hospitalization, Other)
  Sender: FDA-Public Use
  Company Number: JP-009507513-2001JPN001484J

PATIENT
  Age: 71 Year
  Sex: Male
  Weight: 50 kg

DRUGS (10)
  1. EMEND [Concomitant]
     Active Substance: APREPITANT
     Dosage: 1 DOSAGE FORM, DAY1
     Route: 048
     Dates: start: 20190724, end: 20190925
  2. EMEND [Concomitant]
     Active Substance: APREPITANT
     Dosage: 1 DOSAGE FORM, DAY2,3
     Route: 048
     Dates: start: 20190725, end: 20190927
  3. PEMETREXED DISODIUM [Suspect]
     Active Substance: PEMETREXED DISODIUM
     Indication: NON-SMALL CELL LUNG CANCER
     Dosage: 730MG/BODY, Q3W
     Route: 041
     Dates: start: 20190724, end: 20191016
  4. METFORMIN HYDROCHLORIDE (+) MITIGLINIDE CALCIUM HYDRATE [Concomitant]
     Indication: DIABETES MELLITUS
     Dosage: 1 DOSAGE FORM, BID
     Route: 048
  5. KEYTRUDA [Suspect]
     Active Substance: PEMBROLIZUMAB
     Indication: NON-SMALL CELL LUNG CANCER
     Dosage: 200 MILLIGRAM, Q3W
     Route: 041
     Dates: start: 20190724, end: 20191016
  6. GLACTIV [Concomitant]
     Active Substance: SITAGLIPTIN
     Dosage: 1 DOSAGE FORM, QD
     Route: 048
  7. CISPLATIN. [Suspect]
     Active Substance: CISPLATIN
     Indication: NON-SMALL CELL LUNG CANCER
     Dosage: 110MG/BODY, Q3W
     Route: 041
     Dates: start: 20190724, end: 20190925
  8. TELMISARTAN. [Concomitant]
     Active Substance: TELMISARTAN
     Indication: HYPERTENSION
     Dosage: 1 DOSAGE FORM, QD
     Route: 048
  9. PANVITAN [Concomitant]
     Active Substance: VITAMINS
     Dosage: 1 GRAM, QD
     Route: 048
     Dates: start: 20190710, end: 20191211
  10. CYANOCOBALAMIN. [Concomitant]
     Active Substance: CYANOCOBALAMIN
     Dosage: 1A,Q9W
     Route: 051
     Dates: start: 20190710, end: 20191106

REACTIONS (8)
  - Hypothyroidism [Not Recovered/Not Resolved]
  - Diarrhoea [Recovered/Resolved]
  - Interstitial lung disease [Not Recovered/Not Resolved]
  - Constipation [Recovered/Resolved]
  - Alanine aminotransferase increased [Not Recovered/Not Resolved]
  - Rash [Not Recovered/Not Resolved]
  - Blood alkaline phosphatase increased [Not Recovered/Not Resolved]
  - Aspartate aminotransferase increased [Recovered/Resolved]

NARRATIVE: CASE EVENT DATE: 2019
